FAERS Safety Report 5912124-8 (Version None)
Quarter: 2008Q4

REPORT INFORMATION
  Report Type: 
  Country: None (occurrence: None)
  Receive Date: 20081006
  Receipt Date: 20080920
  Transmission Date: 20090506
  Serious: Yes (Hospitalization)
  Sender: FDA-Public Use
  Company Number: MPS1-1000104

PATIENT
  Age: 11 Year
  Sex: Female

DRUGS (1)
  1. ALDURAZYME [Suspect]
     Indication: MUCOPOLYSACCHARIDOSIS I
     Dates: start: 20050222, end: 20070101

REACTIONS (1)
  - PNEUMONIA [None]
